FAERS Safety Report 20201793 (Version 4)
Quarter: 2022Q1

REPORT INFORMATION
  Report Type: Spontaneous
  Country: IT (occurrence: IT)
  Receive Date: 20211217
  Receipt Date: 20220216
  Transmission Date: 20220423
  Serious: Yes (Other)
  Sender: FDA-Public Use
  Company Number: IT-CELLTRION HEALTHCARE HUNGARY KFT-2021IT016052

PATIENT

DRUGS (2)
  1. REMICADE [Suspect]
     Active Substance: INFLIXIMAB
     Indication: Colitis ulcerative
     Dosage: 5 MG/KG AT 0, 2, AND 6 WEEKS AND EVERY 8 WEEKS
     Route: 042
  2. REMICADE [Suspect]
     Active Substance: INFLIXIMAB
     Dosage: 5 MG/KG AT 0, 2, AND 6 WEEKS AND EVERY 8 WEEKS THEREAFTER FOR 52 WEEKS
     Route: 042

REACTIONS (13)
  - Colitis ulcerative [Unknown]
  - Cytomegalovirus colitis [Unknown]
  - Meningitis listeria [Unknown]
  - Lower respiratory tract infection [Unknown]
  - Nasopharyngitis [Unknown]
  - Headache [Unknown]
  - Arthralgia [Unknown]
  - Anaemia [Unknown]
  - Abdominal pain [Unknown]
  - Diarrhoea [Unknown]
  - Nausea [Unknown]
  - Exposure during pregnancy [Unknown]
  - Drug ineffective [Unknown]
